FAERS Safety Report 8496373-3 (Version None)
Quarter: 2012Q2

REPORT INFORMATION
  Report Type: 
  Country: None (occurrence: None)
  Receive Date: 20120405
  Receipt Date: 20100409
  Transmission Date: 20120825
  Serious: Yes (Hospitalization)
  Sender: FDA-Public Use
  Company Number: PHHY2010US23542

PATIENT
  Age: 32 Year
  Sex: Female

DRUGS (1)
  1. RECLAST [Suspect]
     Indication: OSTEOPOROSIS
     Dosage: 5 MG, ANNUALLY, INTRAVENOUS
     Route: 042
     Dates: start: 20100330

REACTIONS (4)
  - NAUSEA [None]
  - BONE PAIN [None]
  - PYREXIA [None]
  - VOMITING [None]
